FAERS Safety Report 5222915-7 (Version None)
Quarter: 2007Q1

REPORT INFORMATION
  Report Type: 
  Country: None (occurrence: None)
  Receive Date: 20070129
  Receipt Date: 20070117
  Transmission Date: 20070707
  Serious: Yes (Other)
  Sender: FDA-Public Use
  Company Number: FR-PFIZER INC-2007005233

PATIENT
  Sex: Female

DRUGS (5)
  1. XALATAN [Suspect]
     Indication: GLAUCOMA
  2. HYDROCHLOROTHIAZIDE [Concomitant]
  3. IRBESARTAN [Concomitant]
  4. CLOPIDOGREL BISULFATE [Concomitant]
  5. INSULIN [Concomitant]

REACTIONS (1)
  - HYPOGLYCAEMIA [None]
